FAERS Safety Report 8238104-8 (Version None)
Quarter: 2012Q1

REPORT INFORMATION
  Report Type: 
  Country: None (occurrence: None)
  Receive Date: 20120327
  Receipt Date: 20120322
  Transmission Date: 20120608
  Serious: Yes (Hospitalization)
  Sender: FDA-Public Use
  Company Number: DK-GLAXOSMITHKLINE-B0791260A

PATIENT
  Sex: Female

DRUGS (2)
  1. CLOBETASOL PROPIONATE [Suspect]
     Indication: PRODUCT USED FOR UNKNOWN INDICATION
     Route: 061
  2. METFORMIN HCL [Concomitant]
     Indication: DIABETES MELLITUS

REACTIONS (1)
  - BLOOD GLUCOSE INCREASED [None]
